FAERS Safety Report 7540442-9 (Version None)
Quarter: 2011Q2

REPORT INFORMATION
  Report Type: 
  Country: None (occurrence: None)
  Receive Date: 20110603
  Receipt Date: 20110518
  Transmission Date: 20111010
  Serious: Yes (Life-Threatening, Hospitalization, Other)
  Sender: FDA-Public Use
  Company Number: 2011MA006145

PATIENT
  Age: 12 Year
  Sex: Female
  Weight: 64 kg

DRUGS (5)
  1. CITALOPRAM HYDROBROMIDE [Concomitant]
  2. FEVERALL [Suspect]
     Indication: INTENTIONAL SELF-INJURY
     Dosage: 87500 MG; 1X; PO
     Route: 048
  3. DIPHENHYDRAMINE HCL [Suspect]
     Indication: INTENTIONAL SELF-INJURY
     Dosage: 1200 MG; 1X; PO
     Route: 048
  4. DEXTROAMPHETAMINE [Concomitant]
  5. RISPERIDONE [Concomitant]

REACTIONS (13)
  - LETHARGY [None]
  - VOMITING [None]
  - DRUG SCREEN POSITIVE [None]
  - INTENTIONAL SELF-INJURY [None]
  - INTENTIONAL OVERDOSE [None]
  - HYPOTENSION [None]
  - HEART RATE INCREASED [None]
  - HEPATIC FAILURE [None]
  - HAEMOPHILUS INFECTION [None]
  - HYPOGLYCAEMIA [None]
  - INTERNATIONAL NORMALISED RATIO INCREASED [None]
  - HEPATIC ENCEPHALOPATHY [None]
  - BLOOD CULTURE POSITIVE [None]
